FAERS Safety Report 8613226-8 (Version None)
Quarter: 2012Q3

REPORT INFORMATION
  Report Type: 
  Country: None (occurrence: None)
  Receive Date: 20120822
  Receipt Date: 20120717
  Transmission Date: 20120928
  Serious: No
  Sender: FDA-Public Use
  Company Number: US-009507513-1207USA007668

PATIENT

DRUGS (2)
  1. DULERA [Suspect]
     Indication: ASTHMA
     Dosage: 200MCG/5MCG BID
     Route: 055
  2. ALBUTEROL [Concomitant]

REACTIONS (2)
  - COUGH [None]
  - NASAL CONGESTION [None]
